FAERS Safety Report 11934078 (Version 1)
Quarter: 2016Q1

REPORT INFORMATION
  Report Type: Spontaneous
  Country: US (occurrence: None)
  Receive Date: 20160120
  Receipt Date: 20160120
  Transmission Date: 20160526
  Serious: No
  Sender: FDA-Public Use
  Company Number: None

PATIENT
  Age: 8 Year
  Sex: Male

DRUGS (3)
  1. TOBI PODHALER [Suspect]
     Active Substance: TOBRAMYCIN
     Indication: CYSTIC FIBROSIS
     Route: 055
     Dates: start: 2016
  2. PULMOZYME [Concomitant]
     Active Substance: DORNASE ALFA
  3. AQUADEKS [Concomitant]

REACTIONS (2)
  - Cough [None]
  - Dysphonia [None]

NARRATIVE: CASE EVENT DATE: 2015
